FAERS Safety Report 5393587-6 (Version None)
Quarter: 2007Q3

REPORT INFORMATION
  Report Type: 
  Country: None (occurrence: None)
  Receive Date: 20070723
  Receipt Date: 20060912
  Transmission Date: 20080115
  Serious: No
  Sender: FDA-Public Use
  Company Number: A0619941A

PATIENT
  Sex: Female

DRUGS (2)
  1. AVANDIA [Suspect]
     Route: 065
  2. AMARYL [Suspect]
     Route: 065

REACTIONS (3)
  - BLOOD GLUCOSE INCREASED [None]
  - DRUG INEFFECTIVE [None]
  - MALAISE [None]
